FAERS Safety Report 15862110 (Version 1)
Quarter: 2019Q1

REPORT INFORMATION
  Report Type: Spontaneous
  Country: FR (occurrence: FR)
  Receive Date: 20190124
  Receipt Date: 20190124
  Transmission Date: 20190417
  Serious: Yes (Life-Threatening, Hospitalization)
  Sender: FDA-Public Use
  Company Number: FR-SA-2019SA016647

PATIENT
  Age: 84 Year
  Sex: Female
  Weight: 81.8 kg

DRUGS (14)
  1. AMLODIPINE [Concomitant]
     Active Substance: AMLODIPINE BESYLATE
  2. RILMENIDINE [Concomitant]
     Active Substance: RILMENIDINE
  3. DUPHALAC [Concomitant]
     Active Substance: LACTULOSE
  4. KARDEGIC [Concomitant]
     Active Substance: ASPIRIN DL-LYSINE
  5. ABASAGLAR [Concomitant]
     Active Substance: INSULIN GLARGINE
     Dosage: UNK UNK, UNK
     Route: 065
  6. OXAZEPAM. [Suspect]
     Active Substance: OXAZEPAM
     Indication: PRODUCT ADMINISTRATION ERROR
     Dosage: 20 MG
     Route: 048
     Dates: start: 20181206
  7. VENLAFAXINE HYDROCHLORIDE. [Suspect]
     Active Substance: VENLAFAXINE HYDROCHLORIDE
     Indication: PRODUCT ADMINISTRATION ERROR
     Dosage: 37.5 MG
     Route: 048
     Dates: start: 20181206
  8. FUROSEMIDE. [Concomitant]
     Active Substance: FUROSEMIDE
  9. ATORVASTATINE [ATORVASTATIN] [Concomitant]
     Active Substance: ATORVASTATIN
  10. INEXIUM [ESOMEPRAZOLE SODIUM] [Concomitant]
     Active Substance: ESOMEPRAZOLE SODIUM
  11. TENORETIC [Concomitant]
     Active Substance: ATENOLOL\CHLORTHALIDONE
  12. NOVORAPID [Concomitant]
     Active Substance: INSULIN ASPART
  13. GABAPENTIN. [Suspect]
     Active Substance: GABAPENTIN
     Indication: PRODUCT ADMINISTRATION ERROR
     Dosage: 300 MG
     Route: 048
     Dates: start: 20181206
  14. HYDROCORTISONE ROUSSEL [Suspect]
     Active Substance: HYDROCORTISONE
     Indication: PRODUCT ADMINISTRATION ERROR
     Dosage: 10 MG
     Route: 048
     Dates: start: 20181206

REACTIONS (5)
  - Hypercapnia [Recovered/Resolved]
  - Product administration error [Unknown]
  - Wrong patient received product [Unknown]
  - Somnolence [Recovered/Resolved]
  - Anuria [Recovered/Resolved]

NARRATIVE: CASE EVENT DATE: 20181206
